FAERS Safety Report 8796262 (Version 2)
Quarter: 2012Q4

REPORT INFORMATION
  Report Type: 
  Country: IT (occurrence: IT)
  Receive Date: 20120919
  Receipt Date: 20120927
  Transmission Date: 20130627
  Serious: Yes (Death, Hospitalization)
  Sender: FDA-Public Use
  Company Number: IT-BRISTOL-MYERS SQUIBB COMPANY-16945834

PATIENT
  Age: 83 Year
  Sex: Female

DRUGS (8)
  1. COUMADIN TABS 5 MG [Suspect]
     Indication: ATRIAL FIBRILLATION
     Route: 048
     Dates: start: 20100801, end: 20120604
  2. ALLOPURINOL [Concomitant]
  3. SIMVASTATIN [Concomitant]
  4. OMEPRAZOLE [Concomitant]
  5. LEVETIRACETAM [Concomitant]
  6. FUROSEMIDE [Concomitant]
  7. BISOPROLOL HEMIFUMARATE [Concomitant]
  8. RAMIPRIL [Concomitant]

REACTIONS (3)
  - Cardiac failure [Fatal]
  - Renal failure acute [Fatal]
  - Cerebral haemorrhage [Unknown]
